FAERS Safety Report 15713546 (Version 2)
Quarter: 2018Q4

REPORT INFORMATION
  Report Type: Spontaneous
  Country: US (occurrence: US)
  Receive Date: 20181212
  Receipt Date: 20181228
  Transmission Date: 20190205
  Serious: Yes (Hospitalization, Other)
  Sender: FDA-Public Use
  Company Number: US-GLAXOSMITHKLINE-US2018GSK221542

PATIENT
  Sex: Female

DRUGS (6)
  1. TADALAFIL. [Concomitant]
     Active Substance: TADALAFIL
  2. FLOLAN DILUENT PH 12 [Suspect]
     Active Substance: GLYCINE\MANNITOL\SODIUM CHLORIDE
     Indication: PULMONARY ARTERIAL HYPERTENSION
     Dosage: UNK
     Dates: start: 20181031
  3. FLOLAN [Suspect]
     Active Substance: EPOPROSTENOL SODIUM
     Indication: PULMONARY ARTERIAL HYPERTENSION
     Dosage: 85 DF, CO
     Route: 042
     Dates: start: 20150706
  4. FLOLAN [Suspect]
     Active Substance: EPOPROSTENOL SODIUM
     Dosage: 88 DF, CO
  5. XARELTO [Concomitant]
     Active Substance: RIVAROXABAN
  6. OPSUMIT [Concomitant]
     Active Substance: MACITENTAN

REACTIONS (3)
  - Pulmonary hypertension [Unknown]
  - Hospitalisation [Unknown]
  - Pericardial effusion [Unknown]
